FAERS Safety Report 10467333 (Version 2)
Quarter: 2014Q4

REPORT INFORMATION
  Report Type: Spontaneous
  Country: BR (occurrence: BR)
  Receive Date: 20140922
  Receipt Date: 20141002
  Transmission Date: 20150528
  Serious: Yes (Life-Threatening, Hospitalization)
  Sender: FDA-Public Use
  Company Number: BR-PFIZER INC-2014260039

PATIENT
  Age: 8 Year

DRUGS (2)
  1. CLONAZEPAM. [Suspect]
     Active Substance: CLONAZEPAM
     Dosage: 2 (TWO) CHART
     Route: 048
  2. ATENOLOL. [Suspect]
     Active Substance: ATENOLOL
     Dosage: 1 (ONE) CHART
     Route: 048

REACTIONS (8)
  - Fatigue [Recovering/Resolving]
  - Hypotonia [Recovering/Resolving]
  - Headache [Recovering/Resolving]
  - Intentional overdose [Recovering/Resolving]
  - Somnolence [Recovering/Resolving]
  - Confusional state [Recovering/Resolving]
  - Suicide attempt [Unknown]
  - Dyslalia [Recovering/Resolving]

NARRATIVE: CASE EVENT DATE: 20130821
